FAERS Safety Report 10869864 (Version 1)
Quarter: 2015Q1

REPORT INFORMATION
  Report Type: Spontaneous
  Country: US (occurrence: None)
  Receive Date: 20150223
  Receipt Date: 20150223
  Transmission Date: 20150721
  Serious: Yes (Life-Threatening, Hospitalization)
  Sender: FDA-Public Use
  Company Number: CPI 6773

PATIENT
  Age: 2 Year
  Sex: Female

DRUGS (1)
  1. N-ACETYLCYSTEINE (PARACETAMOL) UNKNOWN [Suspect]
     Active Substance: ACETYLCYSTEINE
     Indication: TOXICITY TO VARIOUS AGENTS
     Route: 042

REACTIONS (14)
  - Dyspnoea [None]
  - Hypotension [None]
  - Blood pressure decreased [None]
  - Tachycardia [None]
  - Respiratory tract infection viral [None]
  - Infusion related reaction [None]
  - Seizure [None]
  - Lethargy [None]
  - Somnolence [None]
  - Encephalopathy [None]
  - Urticaria [None]
  - Accidental exposure to product by child [None]
  - Angioedema [None]
  - Blindness [None]

NARRATIVE: CASE EVENT DATE: 2014
